FAERS Safety Report 7558924-2 (Version None)
Quarter: 2011Q2

REPORT INFORMATION
  Report Type: 
  Country: None (occurrence: None)
  Receive Date: 20110621
  Receipt Date: 20110610
  Transmission Date: 20111010
  Serious: Yes (Other)
  Sender: FDA-Public Use
  Company Number: PHHY2010JP36127

PATIENT
  Age: 78 Year
  Sex: Male

DRUGS (3)
  1. CORTICOSTEROID NOS [Concomitant]
     Route: 048
  2. LOCHOLEST [Suspect]
     Route: 048
     Dates: start: 20020901, end: 20040701
  3. LOCHOLEST [Suspect]
     Dosage: UNK
     Route: 048
     Dates: start: 20050101

REACTIONS (7)
  - INTERSTITIAL LUNG DISEASE [None]
  - DYSPNOEA [None]
  - EOSINOPHILIC PNEUMONIA [None]
  - PYREXIA [None]
  - ERYTHEMA ANNULARE [None]
  - PRURITUS [None]
  - RASH [None]
